FAERS Safety Report 15409287 (Version 1)
Quarter: 2018Q4

REPORT INFORMATION
  Report Type: Spontaneous
  Country: US (occurrence: US)
  Receive Date: 20180920
  Receipt Date: 20180920
  Transmission Date: 20190204
  Serious: No
  Sender: FDA-Public Use
  Company Number: US-ENCOREDERM-2018-US-014563

PATIENT
  Age: 62 Year
  Sex: Female
  Weight: 108.86 kg

DRUGS (3)
  1. WELLBUTRIN [Concomitant]
     Active Substance: BUPROPION HYDROCHLORIDE
  2. IMPOYZ [Suspect]
     Active Substance: CLOBETASOL PROPIONATE
     Dosage: ONE TIME ONLY
     Route: 061
     Dates: start: 20180823, end: 20180823
  3. LISINOPRIL. [Concomitant]
     Active Substance: LISINOPRIL

REACTIONS (3)
  - Dizziness [Unknown]
  - Nausea [Unknown]
  - Nightmare [Recovered/Resolved]

NARRATIVE: CASE EVENT DATE: 20180823
